FAERS Safety Report 5857271-4 (Version None)
Quarter: 2008Q3

REPORT INFORMATION
  Report Type: 
  Country: None (occurrence: None)
  Receive Date: 20080822
  Receipt Date: 20080814
  Transmission Date: 20090109
  Serious: Yes (Hospitalization)
  Sender: FDA-Public Use
  Company Number: JPI-P004378

PATIENT
  Age: 59 Year
  Sex: Female

DRUGS (3)
  1. XYREM [Suspect]
     Indication: NARCOLEPSY
     Dosage: 4.5 GM (2.25 GM, 2 IN 1 D), ORAL
     Route: 048
     Dates: start: 20080605
  2. MODAFINIL (MODAFINIL) [Concomitant]
  3. CHOLESTEROL LOWERING SUPPLEMENT (CHOLESTEROL - AND TRIGLYCERIDE REDUCE [Concomitant]

REACTIONS (1)
  - PANCREATITIS ACUTE [None]
